FAERS Safety Report 4597587-5 (Version None)
Quarter: 2005Q1

REPORT INFORMATION
  Report Type: 
  Country: None (occurrence: None)
  Receive Date: 20050228
  Receipt Date: 20050228
  Transmission Date: 20050727
  Serious: Yes (Death)
  Sender: FDA-Public Use
  Company Number: None

PATIENT
  Age: 46 Year
  Sex: Male
  Weight: 90.7194 kg

DRUGS (2)
  1. PEG-INTRON INJECTION [Suspect]
     Indication: HEPATITIS C
     Dosage: 15 MG/KG ONCE WEEKLY IV
     Route: 042
     Dates: start: 20000605, end: 20040907
  2. REBETOL [Suspect]
     Dosage: 1000 MG DAILY IV
     Route: 042

REACTIONS (5)
  - COMPLETED SUICIDE [None]
  - DELUSION [None]
  - DEPRESSION [None]
  - INTENTIONAL SELF-INJURY [None]
  - PSYCHOTIC DISORDER [None]
